FAERS Safety Report 19983139 (Version 8)
Quarter: 2022Q1

REPORT INFORMATION
  Report Type: Spontaneous
  Country: ZA (occurrence: ZA)
  Receive Date: 20211022
  Receipt Date: 20220317
  Transmission Date: 20220424
  Serious: Yes (Hospitalization)
  Sender: FDA-Public Use
  Company Number: ZA-CELLTRION INC.-2021ZA014191

PATIENT

DRUGS (10)
  1. INFLIXIMAB [Suspect]
     Active Substance: INFLIXIMAB
     Indication: Colitis ulcerative
     Dosage: 640 MG AT 8 WEEKLY INFUSIONS
     Route: 042
     Dates: start: 20210901, end: 20210901
  2. INFLIXIMAB [Suspect]
     Active Substance: INFLIXIMAB
     Dosage: 400 MG AT WEEK 0
     Route: 042
     Dates: start: 20211002
  3. INFLIXIMAB [Suspect]
     Active Substance: INFLIXIMAB
     Dosage: 400 MG, WEEK 2
     Route: 042
     Dates: start: 20211018
  4. INFLIXIMAB [Suspect]
     Active Substance: INFLIXIMAB
     Dosage: 400 MG, WEEK 6
     Route: 042
     Dates: start: 20211112
  5. INFLIXIMAB [Suspect]
     Active Substance: INFLIXIMAB
     Dosage: 400 MG, EVERY 4 WEEKS
  6. ASACOL [Concomitant]
     Active Substance: MESALAMINE
     Indication: Colitis ulcerative
     Dosage: 4.8 GRAM, DAILY
     Dates: start: 202104
  7. MESALAMINE [Concomitant]
     Active Substance: MESALAMINE
     Indication: Colitis ulcerative
     Dosage: 4.8 GRAM, DAILY
     Dates: start: 202104
  8. AZASAN [Concomitant]
     Active Substance: AZATHIOPRINE
     Indication: Colitis ulcerative
     Dosage: 150 MG, DAILY
  9. PREDNISONE [Concomitant]
     Active Substance: PREDNISONE
     Indication: Colitis ulcerative
     Dosage: 20 MG, DAILY
  10. SLOW K [Concomitant]
     Active Substance: POTASSIUM CHLORIDE
     Indication: Colitis ulcerative
     Dosage: 1200 MG BD

REACTIONS (7)
  - Pyrexia [Unknown]
  - Colitis ulcerative [Recovering/Resolving]
  - Colitis [Recovering/Resolving]
  - Vasculitic rash [Recovering/Resolving]
  - Intentional dose omission [Unknown]
  - Overdose [Unknown]
  - Off label use [Unknown]

NARRATIVE: CASE EVENT DATE: 20211014
